FAERS Safety Report 21593119 (Version 1)
Quarter: 2022Q4

REPORT INFORMATION
  Report Type: Spontaneous
  Country: US (occurrence: None)
  Receive Date: 20221111
  Receipt Date: 20221111
  Transmission Date: 20230112
  Serious: No
  Sender: FDA-Public Use
  Company Number: None

PATIENT
  Age: 81 Year
  Sex: Female

DRUGS (1)
  1. ENOXAPARIN [Suspect]
     Active Substance: ENOXAPARIN
     Dosage: 120MG DAILY SUBCUTANEOUS
     Route: 058

REACTIONS (3)
  - Thrombosis [None]
  - Cellulitis [None]
  - Skin laceration [None]

NARRATIVE: CASE EVENT DATE: 20221028
